FAERS Safety Report 4744582-9 (Version None)
Quarter: 2005Q3

REPORT INFORMATION
  Report Type: 
  Country: None (occurrence: None)
  Receive Date: 20050808
  Receipt Date: 20050110
  Transmission Date: 20060218
  Serious: Yes (Hospitalization)
  Sender: FDA-Public Use
  Company Number: US-JNJFOC-20050101964

PATIENT
  Age: 16 Year
  Sex: Male

DRUGS (3)
  1. TYLENOL [Suspect]
     Indication: SUICIDE ATTEMPT
     Dosage: APPROXIMATELY 12,000MG
     Dates: start: 20041218, end: 20041218
  2. ZOLOFT [Concomitant]
  3. STRATERRA (CETIEDIL) [Concomitant]

REACTIONS (2)
  - INTENTIONAL MISUSE [None]
  - POLLAKIURIA [None]
